FAERS Safety Report 9197735 (Version 3)
Quarter: 2013Q4

REPORT INFORMATION
  Report Type: Spontaneous
  Country: US (occurrence: US)
  Receive Date: 20130328
  Receipt Date: 20131125
  Transmission Date: 20140711
  Serious: Yes (Other)
  Sender: FDA-Public Use
  Company Number: US-BAYER-2013-038467

PATIENT
  Age: 22 Year
  Sex: Female

DRUGS (10)
  1. YAZ [Suspect]
  2. YASMIN [Suspect]
  3. TOPAMAX [Concomitant]
     Dosage: 25 MG, UNK
     Route: 048
     Dates: start: 20090206
  4. ZOLPIDEM TARTRATE [Concomitant]
     Dosage: 10 MG, UNK
     Route: 048
     Dates: start: 20090306
  5. ZALEPLON [Concomitant]
     Dosage: 10 MG, UNK
     Route: 048
     Dates: start: 20090319
  6. HYDROCODONE W/APAP [Concomitant]
     Dosage: 7.5 -750
     Route: 048
     Dates: start: 20090327
  7. CYCLOBENZAPRINE [Concomitant]
     Dosage: 10 MG, UNK
     Route: 048
     Dates: start: 20090415
  8. MELOXICAM [Concomitant]
     Dosage: 7.5 MG, UNK
     Route: 048
     Dates: start: 20090415
  9. EFFEXOR [Concomitant]
     Route: 048
  10. WELLBUTRIN [Concomitant]
     Route: 048

REACTIONS (5)
  - Gallbladder injury [None]
  - Cholecystitis chronic [None]
  - Injury [None]
  - Pain [None]
  - Pain [None]
